FAERS Safety Report 6740013-8 (Version None)
Quarter: 2010Q2

REPORT INFORMATION
  Report Type: 
  Country: None (occurrence: None)
  Receive Date: 20100525
  Receipt Date: 20100517
  Transmission Date: 20101027
  Serious: Yes (Hospitalization)
  Sender: FDA-Public Use
  Company Number: US-ELI_LILLY_AND_COMPANY-US201005002661

PATIENT
  Sex: Male
  Weight: 66.757 kg

DRUGS (11)
  1. PEMETREXED [Suspect]
     Indication: NON-SMALL CELL LUNG CANCER
     Dosage: 500 MG/M2, OTHER
     Route: 042
     Dates: start: 20100414
  2. CISPLATIN [Suspect]
     Indication: NON-SMALL CELL LUNG CANCER
     Dosage: 75 MG/M2, OTHER
     Route: 042
     Dates: start: 20100414
  3. OXYCONTIN [Concomitant]
     Dosage: 20 MG, OTHER
     Route: 048
  4. OXYCODONE [Concomitant]
     Dosage: 10 MG, DAILY (1/D)
     Route: 048
  5. METOPROLOL [Concomitant]
     Dosage: 50 MG, DAILY (1/D)
     Route: 048
  6. LIDOCAINE [Concomitant]
     Dosage: 5 %, OTHER
     Route: 062
  7. FLOMAX [Concomitant]
     Dosage: 0.8 MG, DAILY (1/D)
     Route: 048
  8. PROSCAR [Concomitant]
     Dosage: 5 MG, EACH EVENING
     Route: 048
  9. RESTORIL [Concomitant]
     Dosage: 15 MG, EACH EVENING
     Route: 048
  10. EX-LAX [Concomitant]
     Dosage: 25 MG, 2/D
     Route: 048
  11. PLAVIX [Concomitant]
     Dosage: UNK, UNKNOWN
     Route: 065
     Dates: end: 20100512

REACTIONS (2)
  - PLEURAL EFFUSION [None]
  - PULMONARY EMBOLISM [None]
